FAERS Safety Report 9512219 (Version 1)
Quarter: 2013Q3

REPORT INFORMATION
  Report Type: Spontaneous
  Country: US (occurrence: US)
  Receive Date: 20130910
  Receipt Date: 20130910
  Transmission Date: 20140515
  Serious: Yes (Death, Hospitalization, Other)
  Sender: FDA-Public Use
  Company Number: PHHY2013US096757

PATIENT
  Age: 56 Year
  Sex: Female

DRUGS (6)
  1. EVEROLIMUS [Suspect]
     Indication: BREAST CANCER METASTATIC
     Dosage: 10 MG, DAILY
     Route: 048
     Dates: start: 20130219, end: 20130306
  2. EVEROLIMUS [Suspect]
     Dosage: 5 MG, DAILY
     Route: 048
     Dates: start: 20130325
  3. EXEMESTANE [Concomitant]
     Indication: BREAST CANCER METASTATIC
     Dosage: 25 MG, DAILY
     Route: 048
     Dates: start: 20130219
  4. ESOMEPRAZOLE [Concomitant]
  5. SUCRALFATE [Concomitant]
  6. QUETIAPINE [Concomitant]

REACTIONS (25)
  - Hepatitis B [Fatal]
  - Acute hepatic failure [Fatal]
  - Jaundice [Fatal]
  - Transaminases increased [Fatal]
  - Hypophosphataemia [Fatal]
  - Decreased appetite [Fatal]
  - Faeces discoloured [Fatal]
  - Abdominal pain upper [Fatal]
  - Chromaturia [Fatal]
  - Hypoglycaemia [Fatal]
  - Nausea [Fatal]
  - Blood lactate dehydrogenase increased [Fatal]
  - International normalised ratio increased [Fatal]
  - Multi-organ failure [Fatal]
  - Encephalopathy [Fatal]
  - Hepatorenal syndrome [Fatal]
  - Renal failure acute [Fatal]
  - Respiratory tract infection viral [Recovering/Resolving]
  - Cough [Recovering/Resolving]
  - Haemoptysis [Recovering/Resolving]
  - Exercise tolerance decreased [Recovering/Resolving]
  - Hyperglycaemia [Recovered/Resolved]
  - Diarrhoea [Recovered/Resolved]
  - Fatigue [Recovered/Resolved]
  - Stomatitis [Recovered/Resolved]
